FAERS Safety Report 15563626 (Version 1)
Quarter: 2018Q4

REPORT INFORMATION
  Report Type: Spontaneous
  Country: US (occurrence: US)
  Receive Date: 20181029
  Receipt Date: 20181029
  Transmission Date: 20190205
  Serious: No
  Sender: FDA-Public Use
  Company Number: US-TEVA-2018-US-966674

PATIENT
  Sex: Male

DRUGS (1)
  1. CARBIDOPA AND LEVODOPA [Suspect]
     Active Substance: CARBIDOPA\LEVODOPA
     Indication: RESTLESS LEGS SYNDROME
     Dosage: DOSE STRENGTH: 25/100 MG
     Route: 065
     Dates: start: 20181010

REACTIONS (6)
  - Musculoskeletal stiffness [Unknown]
  - Constipation [Unknown]
  - Movement disorder [Unknown]
  - Muscle tightness [Unknown]
  - Pain of skin [Unknown]
  - Somnolence [Unknown]

NARRATIVE: CASE EVENT DATE: 201810
